FAERS Safety Report 21928680 (Version 1)
Quarter: 2023Q1

REPORT INFORMATION
  Report Type: Spontaneous
  Country: US (occurrence: US)
  Receive Date: 20230130
  Receipt Date: 20230130
  Transmission Date: 20230418
  Serious: No
  Sender: FDA-Public Use
  Company Number: US-UNITED THERAPEUTICS-UNT-2023-002079

PATIENT
  Age: 39 Year
  Sex: Female
  Weight: 42.63 kg

DRUGS (3)
  1. REMODULIN [Suspect]
     Active Substance: TREPROSTINIL
     Indication: Pulmonary arterial hypertension
     Dosage: 0.070 ?G/KG, CONTINUING (PREFILLED WITH 1.8 ML PER CASSETTE AT A PUMP RATE OF 18 MCL/HR)
     Route: 058
  2. REMODULIN [Suspect]
     Active Substance: TREPROSTINIL
     Dosage: UNK, CONTINUING
     Route: 058
     Dates: start: 20220929
  3. ADEMPAS [Concomitant]
     Active Substance: RIOCIGUAT
     Indication: Product used for unknown indication
     Route: 065

REACTIONS (6)
  - Dizziness [Unknown]
  - Nervousness [Unknown]
  - Indifference [Unknown]
  - Feeding disorder [Unknown]
  - Device failure [Unknown]
  - Device failure [Unknown]

NARRATIVE: CASE EVENT DATE: 20230101
